FAERS Safety Report 9104269 (Version 2)
Quarter: 2013Q1

REPORT INFORMATION
  Report Type: Spontaneous
  Country: US (occurrence: US)
  Receive Date: 20130219
  Receipt Date: 20130221
  Transmission Date: 20140127
  Serious: Yes (Hospitalization, Other)
  Sender: FDA-Public Use
  Company Number: PHEH2013US003485

PATIENT
  Sex: Female

DRUGS (11)
  1. DIOVAN [Suspect]
     Indication: BLOOD PRESSURE ABNORMAL
     Dosage: 1 DF, BID (ONCE IN MORNING AND ONCE AT NIGHT)
  2. DIOVAN [Suspect]
     Dosage: 1 DF, QD (IN THE MORNING)
  3. CARDIZEM [Suspect]
  4. TYLENOL [Suspect]
  5. ADVIL (IBUPROFEN) [Suspect]
  6. MOTRIN [Suspect]
  7. CLOTRIMAZOLE [Suspect]
  8. BETAMETHASONE [Suspect]
  9. XANAX [Suspect]
  10. NORVASC [Suspect]
     Dosage: 2.5 MG, UNK
  11. CRESTOR [Concomitant]

REACTIONS (19)
  - Heart rate decreased [Unknown]
  - Blood pressure fluctuation [Unknown]
  - Syncope [Unknown]
  - Rash macular [Recovering/Resolving]
  - Burning sensation [Unknown]
  - Erythema [Recovering/Resolving]
  - Skin irritation [Unknown]
  - Pain [Unknown]
  - Pruritus [Recovering/Resolving]
  - Neck pain [Unknown]
  - Gastrooesophageal reflux disease [Unknown]
  - Gastric dilatation [Unknown]
  - Nausea [Unknown]
  - Pollakiuria [Unknown]
  - Electrolyte imbalance [Unknown]
  - Drug hypersensitivity [Unknown]
  - Anxiety [Unknown]
  - Headache [Unknown]
  - Dizziness [Unknown]
